FAERS Safety Report 7259484-6 (Version None)
Quarter: 2011Q1

REPORT INFORMATION
  Report Type: 
  Country: None (occurrence: None)
  Receive Date: 20110129
  Receipt Date: 20101012
  Transmission Date: 20110831
  Serious: No
  Sender: FDA-Public Use
  Company Number: US-MYLANLABS-2010S1018844

PATIENT
  Age: 15 Year
  Sex: Male
  Weight: 65.77 kg

DRUGS (2)
  1. LAMOTRIGINE [Suspect]
     Indication: MOOD DISORDER DUE TO A GENERAL MEDICAL CONDITION
     Route: 048
     Dates: start: 20100801, end: 20101001
  2. LAMOTRIGINE [Suspect]
     Route: 048
     Dates: start: 20101001, end: 20101008

REACTIONS (6)
  - AGITATION [None]
  - LYMPHADENOPATHY [None]
  - ACNE [None]
  - SKIN DISCOLOURATION [None]
  - DEPRESSION [None]
  - ANGER [None]
